FAERS Safety Report 5890229-8 (Version None)
Quarter: 2008Q3

REPORT INFORMATION
  Report Type: 
  Country: None (occurrence: None)
  Receive Date: 20080919
  Receipt Date: 20080909
  Transmission Date: 20090109
  Serious: Yes (Other)
  Sender: FDA-Public Use
  Company Number: US-PFIZER INC-2008076455

PATIENT
  Sex: Male
  Weight: 99.8 kg

DRUGS (8)
  1. LYRICA [Suspect]
     Indication: BACK DISORDER
     Dates: start: 20080818, end: 20080908
  2. LYRICA [Suspect]
     Indication: PAIN
  3. GABAPENTIN [Suspect]
     Indication: BACK PAIN
     Dates: start: 20080101
  4. SIMVASTATIN [Concomitant]
     Indication: BLOOD CHOLESTEROL INCREASED
  5. ACETAMINOPHEN [Concomitant]
     Indication: PAIN
  6. ACETAMINOPHEN [Concomitant]
     Indication: HEADACHE
  7. VITAMIN TAB [Concomitant]
  8. CYMBALTA [Concomitant]
     Indication: PAIN

REACTIONS (3)
  - DENTAL OPERATION [None]
  - DRUG INEFFECTIVE [None]
  - VISION BLURRED [None]
